FAERS Safety Report 14773622 (Version 1)
Quarter: 2018Q2

REPORT INFORMATION
  Report Type: Spontaneous
  Country: US (occurrence: US)
  Receive Date: 20180411
  Receipt Date: 20180411
  Transmission Date: 20180711
  Serious: Yes (Disabling)
  Sender: FDA-Public Use
  Company Number: None

PATIENT
  Age: 37 Year
  Sex: Female
  Weight: 73.35 kg

DRUGS (3)
  1. ESTRADIOL. [Concomitant]
     Active Substance: ESTRADIOL
  2. ANTACIDS [Concomitant]
     Active Substance: UNSPECIFIED INGREDIENT
  3. CIPROFLOXACN [Suspect]
     Active Substance: CIPROFLOXACIN
     Indication: URINARY TRACT INFECTION
     Dosage: ?          QUANTITY:14 TABLET(S);?
     Route: 048
     Dates: start: 20180409, end: 20180409

REACTIONS (10)
  - Muscular weakness [None]
  - Neuropathy peripheral [None]
  - Asthenopia [None]
  - Pain [None]
  - Balance disorder [None]
  - Muscle tightness [None]
  - Anxiety [None]
  - Plantar fasciitis [None]
  - Sleep disorder [None]
  - Pruritus [None]

NARRATIVE: CASE EVENT DATE: 20180409
